FAERS Safety Report 7640059-1 (Version None)
Quarter: 2011Q3

REPORT INFORMATION
  Report Type: 
  Country: None (occurrence: None)
  Receive Date: 20110727
  Receipt Date: 20110718
  Transmission Date: 20111222
  Serious: Yes (Other)
  Sender: FDA-Public Use
  Company Number: US-ASTRAZENECA-2011SE42827

PATIENT
  Sex: Male

DRUGS (1)
  1. SEROQUEL XR [Suspect]
     Route: 048

REACTIONS (4)
  - THERAPEUTIC RESPONSE UNEXPECTED [None]
  - ROAD TRAFFIC ACCIDENT [None]
  - ACTIVITIES OF DAILY LIVING IMPAIRED [None]
  - SPINAL FRACTURE [None]
